FAERS Safety Report 10203760 (Version 1)
Quarter: 2014Q2

REPORT INFORMATION
  Report Type: Spontaneous
  Country: US (occurrence: None)
  Receive Date: 20140523
  Receipt Date: 20140523
  Transmission Date: 20141212
  Serious: Yes (Other)
  Sender: FDA-Public Use
  Company Number: 2014EXPUS00048

PATIENT
  Sex: Male

DRUGS (2)
  1. EXPAREL (BUPIVACAINE) LIPOSOME INJECTABLE SUSPENSION, MG/ML [Suspect]
     Indication: POSTOPERATIVE ANALGESIA
     Dosage: 30 CC, 1X, UNKNOWN
     Dates: start: 20140509, end: 20140509
  2. MARCAINE [Concomitant]

REACTIONS (3)
  - Respiratory distress [None]
  - Hypotension [None]
  - Procedural haemorrhage [None]
